FAERS Safety Report 6619867-1 (Version None)
Quarter: 2010Q1

REPORT INFORMATION
  Report Type: 
  Country: None (occurrence: None)
  Receive Date: 20100304
  Receipt Date: 20100223
  Transmission Date: 20100710
  Serious: Yes (Hospitalization)
  Sender: FDA-Public Use
  Company Number: 2010SP000418

PATIENT
  Age: 59 Year
  Sex: Female
  Weight: 52.7 kg

DRUGS (8)
  1. CICLESONIDE HFA [Suspect]
     Indication: RHINITIS PERENNIAL
     Dosage: 160 UG; INHALATION
     Route: 055
     Dates: start: 20091021
  2. PREMARIN [Concomitant]
  3. ACIPHEX [Concomitant]
  4. MAXALT [Concomitant]
  5. HYDROCORTISONE CREAM [Concomitant]
  6. TYLENOL-500 [Concomitant]
  7. IBUPROPHEN [Concomitant]
  8. SUDAFED 12 HOUR [Concomitant]

REACTIONS (3)
  - BLADDER PERFORATION [None]
  - INTESTINAL PERFORATION [None]
  - URGE INCONTINENCE [None]
